FAERS Safety Report 6378864-4 (Version None)
Quarter: 2009Q3

REPORT INFORMATION
  Report Type: 
  Country: None (occurrence: None)
  Receive Date: 20090928
  Receipt Date: 20090922
  Transmission Date: 20100115
  Serious: Yes (Death, Other)
  Sender: FDA-Public Use
  Company Number: US-ROXANE LABORATORIES, INC.-2009-RO-00969RO

PATIENT
  Age: 35 Year
  Sex: Female

DRUGS (4)
  1. LIDOCAINE [Suspect]
  2. BARBITURATES [Suspect]
  3. PHENYLPROPANOLAMINE [Suspect]
  4. PHENETHYLAMINE [Suspect]

REACTIONS (2)
  - CONVULSION [None]
  - DRUG TOXICITY [None]
